FAERS Safety Report 5526444-2 (Version None)
Quarter: 2007Q4

REPORT INFORMATION
  Report Type: 
  Country: None (occurrence: None)
  Receive Date: 20071127
  Receipt Date: 20071116
  Transmission Date: 20080405
  Serious: Yes (Hospitalization)
  Sender: FDA-Public Use
  Company Number: US-JNJFOC-20060203859

PATIENT
  Sex: Male
  Weight: 84.82 kg

DRUGS (20)
  1. DOXIL [Suspect]
     Route: 042
  2. DOXIL [Suspect]
     Indication: MULTIPLE MYELOMA
     Route: 042
  3. THALIDOMIDE [Suspect]
     Indication: MULTIPLE MYELOMA
     Route: 048
  4. DECADRON [Suspect]
     Indication: MULTIPLE MYELOMA
     Route: 048
  5. AUGMENTIN '250' [Concomitant]
  6. KLONOPIN [Concomitant]
  7. ADVAIR DISKUS 100/50 [Concomitant]
  8. DIFLUCAN [Concomitant]
  9. COLACE [Concomitant]
  10. BACTRIM [Concomitant]
  11. COUMADIN [Concomitant]
  12. ACYCLOVIR [Concomitant]
  13. ALLOPURINOL [Concomitant]
  14. ARICEPT [Concomitant]
  15. NEXIUM [Concomitant]
  16. SINEMET [Concomitant]
  17. MIRAPEX [Concomitant]
  18. PAXIL [Concomitant]
  19. LASIX [Concomitant]
  20. ZOMETA [Concomitant]

REACTIONS (2)
  - ASTHENIA [None]
  - FALL [None]
